FAERS Safety Report 6649399-6 (Version None)
Quarter: 2010Q1

REPORT INFORMATION
  Report Type: 
  Country: None (occurrence: None)
  Receive Date: 20100322
  Receipt Date: 20100212
  Transmission Date: 20100710
  Serious: Yes (Other)
  Sender: FDA-Public Use
  Company Number: CRC-10-028

PATIENT

DRUGS (11)
  1. VECURONIUM BROMIDE [Suspect]
     Indication: ENDOTRACHEAL INTUBATION
     Dosage: 10MG VIAL, 0.1 MG/KG ON INDUCTION IV + 2-4 MG EVERY HOUR IV
     Route: 042
     Dates: start: 20100208, end: 20100209
  2. VECURONIUM BROMIDE [Suspect]
     Indication: SURGERY
     Dosage: 10MG VIAL, 0.1 MG/KG ON INDUCTION IV + 2-4 MG EVERY HOUR IV
     Route: 042
     Dates: start: 20100208, end: 20100209
  3. VECURONIUM BROMIDE [Suspect]
  4. VECURONIUM BROMIDE [Suspect]
  5. VERSED [Concomitant]
  6. FENTANYL-100 [Concomitant]
  7. LIDOCAINE [Concomitant]
  8. PROPOFOL [Concomitant]
  9. ETONIDATE [Suspect]
  10. ISOFLURANE [Concomitant]
  11. TRAIN OF FOUR [Concomitant]

REACTIONS (1)
  - PRODUCT MEASURED POTENCY ISSUE [None]
